FAERS Safety Report 6303056-4 (Version None)
Quarter: 2009Q3

REPORT INFORMATION
  Report Type: 
  Country: None (occurrence: None)
  Receive Date: 20090810
  Receipt Date: 20090714
  Transmission Date: 20100115
  Serious: No
  Sender: FDA-Public Use
  Company Number: US-BAYER-200928918NA

PATIENT
  Age: 40 Year
  Sex: Male
  Weight: 68 kg

DRUGS (2)
  1. ULTRAVIST (PHARMACY BULK) [Suspect]
     Indication: COMPUTERISED TOMOGRAM ABDOMEN
     Dosage: TOTAL DAILY DOSE: 100 ML  UNIT DOSE: 200 ML
     Route: 042
     Dates: start: 20090714, end: 20090714
  2. BARIUM [Concomitant]
     Route: 048
     Dates: start: 20090714, end: 20090714

REACTIONS (2)
  - RASH [None]
  - URTICARIA [None]
